FAERS Safety Report 17458196 (Version 2)
Quarter: 2021Q1

REPORT INFORMATION
  Report Type: Report from Study
  Country: ID (occurrence: ID)
  Receive Date: 20200225
  Receipt Date: 20210128
  Transmission Date: 20210419
  Serious: Yes (Death, Hospitalization, Other)
  Sender: FDA-Public Use
  Company Number: ID-ASTRAZENECA-2020SE21985

PATIENT
  Sex: Male

DRUGS (1)
  1. TAGRISSO [Suspect]
     Active Substance: OSIMERTINIB
     Indication: NON-SMALL CELL LUNG CANCER
     Route: 048
     Dates: start: 20191211

REACTIONS (11)
  - Peripheral swelling [Unknown]
  - Gait disturbance [Unknown]
  - Condition aggravated [Not Recovered/Not Resolved]
  - Cardiovascular disorder [Unknown]
  - Dyspnoea [Unknown]
  - Fatigue [Unknown]
  - Death [Fatal]
  - Blood albumin decreased [Unknown]
  - Swelling [Not Recovered/Not Resolved]
  - Asthenia [Unknown]
  - Pneumonia [Recovered/Resolved]
